FAERS Safety Report 7717682-9 (Version None)
Quarter: 2011Q3

REPORT INFORMATION
  Report Type: 
  Country: None (occurrence: None)
  Receive Date: 20110824
  Receipt Date: 20110812
  Transmission Date: 20111222
  Serious: Yes (Hospitalization)
  Sender: FDA-Public Use
  Company Number: TPA2011A04728

PATIENT
  Age: 63 Year
  Sex: Male
  Weight: 151.955 kg

DRUGS (6)
  1. SIMVASTATIN [Concomitant]
  2. TAMSULOSIN HCL [Concomitant]
  3. LISINOPRIL [Concomitant]
  4. AMLODIPINE [Concomitant]
  5. ACTOS [Suspect]
     Indication: TYPE 2 DIABETES MELLITUS
     Dosage: 45 MG, 1 IN 1 D, PER ORAL
     Route: 048
     Dates: start: 20091222, end: 20110810
  6. JANUVIA [Concomitant]

REACTIONS (1)
  - TRANSITIONAL CELL CARCINOMA [None]
